FAERS Safety Report 5036102-9 (Version None)
Quarter: 2006Q2

REPORT INFORMATION
  Report Type: 
  Country: None (occurrence: None)
  Receive Date: 20060526
  Receipt Date: 20060221
  Transmission Date: 20061013
  Serious: No
  Sender: FDA-Public Use
  Company Number: 222309

PATIENT
  Sex: Male

DRUGS (1)
  1. RAPTIVA [Suspect]
     Indication: DRUG USE FOR UNKNOWN INDICATION
     Dates: start: 20060213

REACTIONS (3)
  - HEADACHE [None]
  - MYALGIA [None]
  - SINUSITIS [None]
